FAERS Safety Report 20908598 (Version 1)
Quarter: 2022Q2

REPORT INFORMATION
  Report Type: Spontaneous
  Country: FR (occurrence: FR)
  Receive Date: 20220603
  Receipt Date: 20220603
  Transmission Date: 20220721
  Serious: Yes (Other)
  Sender: FDA-Public Use
  Company Number: None

PATIENT
  Age: 53 Year
  Sex: Male
  Weight: 94 kg

DRUGS (3)
  1. ATORVASTATIN [Suspect]
     Active Substance: ATORVASTATIN
     Indication: Dyslipidaemia
     Dosage: UNIT DOSE : 1 DF , FREQUENCY TIME : 1 DAYS , DURATION : 12 YEARS
     Route: 048
     Dates: start: 2009, end: 202108
  2. COMIRNATY [Suspect]
     Active Substance: TOZINAMERAN
     Indication: COVID-19 immunisation
     Dosage: D2, ROUTE OF ADMINISTRATION: LEFT DELTOID.  DISPERSION TO BE DILUTED FOR INJECTION. COVID-19 MRNA VA
     Route: 030
     Dates: start: 202106, end: 202106
  3. ESOMEPRAZOLE [Concomitant]
     Active Substance: ESOMEPRAZOLE

REACTIONS (3)
  - Dyspnoea exertional [Recovered/Resolved]
  - Blood creatine phosphokinase increased [Recovering/Resolving]
  - Palpitations [Not Recovered/Not Resolved]

NARRATIVE: CASE EVENT DATE: 20210716
